FAERS Safety Report 9796011 (Version 2)
Quarter: 2014Q1

REPORT INFORMATION
  Report Type: Spontaneous
  Country: US (occurrence: US)
  Receive Date: 20140103
  Receipt Date: 20140103
  Transmission Date: 20141002
  Serious: No
  Sender: FDA-Public Use
  Company Number: US-GILEAD-2010-0032301

PATIENT
  Sex: Female

DRUGS (6)
  1. CAYSTON [Suspect]
     Indication: CYSTIC FIBROSIS
     Dates: start: 20100910, end: 20100911
  2. BACTRIM DS [Concomitant]
  3. COMBIVENT [Concomitant]
  4. DUONEB [Concomitant]
  5. ADVAIR [Concomitant]
  6. PERCOCET [Concomitant]

REACTIONS (4)
  - Pain [Recovered/Resolved]
  - Tongue ulceration [Recovered/Resolved]
  - Stomatitis [Recovered/Resolved]
  - Oropharyngeal pain [Recovered/Resolved]
